FAERS Safety Report 7265100-X (Version None)
Quarter: 2011Q1

REPORT INFORMATION
  Report Type: 
  Country: None (occurrence: None)
  Receive Date: 20110131
  Receipt Date: 20110120
  Transmission Date: 20110831
  Serious: Yes (Other)
  Sender: FDA-Public Use
  Company Number: JP-JNJFOC-20110104877

PATIENT
  Age: 16 Year
  Sex: Female

DRUGS (11)
  1. INFLIXIMAB [Suspect]
     Dosage: RECEIVED 11 INFUSIONS
     Route: 042
  2. INFLIXIMAB [Suspect]
     Dosage: RECEIVED 11 INFUSIONS
     Route: 042
  3. INFLIXIMAB [Suspect]
     Dosage: RECEIVED 11 INFUSIONS
     Route: 042
  4. INFLIXIMAB [Suspect]
     Dosage: RECEIVED 11 INFUSIONS
     Route: 042
  5. INFLIXIMAB [Suspect]
     Dosage: RECEIVED 11 INFUSIONS
     Route: 042
  6. INFLIXIMAB [Suspect]
     Dosage: RECEIVED 11 INFUSIONS
     Route: 042
  7. INFLIXIMAB [Suspect]
     Dosage: RECEIVED 11 INFUSIONS
     Route: 042
  8. INFLIXIMAB [Suspect]
     Dosage: RECEIVED 11 INFUSIONS
     Route: 042
  9. INFLIXIMAB [Suspect]
     Indication: TAKAYASU'S ARTERITIS
     Dosage: RECEIVED 11 INFUSIONS
     Route: 042
  10. INFLIXIMAB [Suspect]
     Dosage: RECEIVED 11 INFUSIONS
     Route: 042
  11. INFLIXIMAB [Suspect]
     Dosage: RECEIVED 11 INFUSIONS
     Route: 042

REACTIONS (4)
  - INFUSION RELATED REACTION [None]
  - HYPERVENTILATION [None]
  - RESTLESSNESS [None]
  - THERAPEUTIC RESPONSE DECREASED [None]
